FAERS Safety Report 11374280 (Version 1)
Quarter: 2015Q3

REPORT INFORMATION
  Report Type: Spontaneous
  Country: FR (occurrence: FR)
  Receive Date: 20150812
  Receipt Date: 20150812
  Transmission Date: 20151125
  Serious: Yes (Disabling, Congenital Anomaly)
  Sender: FDA-Public Use
  Company Number: FR-LUNDBECK-DKLU2002704

PATIENT
  Age: 1 Day
  Sex: Male

DRUGS (7)
  1. URBANYL [Suspect]
     Active Substance: CLOBAZAM
     Route: 064
     Dates: end: 20040617
  2. GARDENAL [Suspect]
     Active Substance: PHENOBARBITAL
     Indication: PRODUCT USED FOR UNKNOWN INDICATION
     Route: 064
     Dates: start: 200310
  3. DEPAKINE CHRONO [Suspect]
     Active Substance: VALPROATE SODIUM
     Indication: PRODUCT USED FOR UNKNOWN INDICATION
     Route: 064
     Dates: start: 200310, end: 20040617
  4. RIVOTRIL [Suspect]
     Active Substance: CLONAZEPAM
     Indication: PRODUCT USED FOR UNKNOWN INDICATION
     Route: 064
     Dates: start: 200310
  5. URBANYL [Suspect]
     Active Substance: CLOBAZAM
     Indication: PRODUCT USED FOR UNKNOWN INDICATION
     Route: 064
     Dates: start: 200310
  6. GARDENAL [Suspect]
     Active Substance: PHENOBARBITAL
     Route: 048
     Dates: end: 20040617
  7. RIVOTRIL [Suspect]
     Active Substance: CLONAZEPAM
     Route: 064
     Dates: end: 20140617

REACTIONS (3)
  - Dysmorphism [Recovered/Resolved with Sequelae]
  - Autism spectrum disorder [Recovered/Resolved with Sequelae]
  - Foetal exposure during pregnancy [Recovered/Resolved with Sequelae]

NARRATIVE: CASE EVENT DATE: 20040618
